FAERS Safety Report 11583399 (Version 3)
Quarter: 2016Q2

REPORT INFORMATION
  Report Type: Report from Study
  Country: IT (occurrence: IT)
  Receive Date: 20151001
  Receipt Date: 20160623
  Transmission Date: 20160815
  Serious: Yes (Other)
  Sender: FDA-Public Use
  Company Number: IT-ROCHE-1640550

PATIENT

DRUGS (1)
  1. RITUXIMAB [Suspect]
     Active Substance: RITUXIMAB
     Indication: NEUROMYELITIS OPTICA SPECTRUM DISORDER
     Dosage: FORTY TWO PATIENTS WERE TREATED WITH RITUXIMAB AT A DOSE OF 375 MG/M2/WEEK FOR 4 WEEKS AND THIRTY-ON
     Route: 042

REACTIONS (5)
  - Respiratory tract infection [Unknown]
  - Breast cancer [Unknown]
  - Infection [Unknown]
  - Infusion related reaction [Unknown]
  - Urinary tract infection [Unknown]
